FAERS Safety Report 17858345 (Version 2)
Quarter: 2020Q2

REPORT INFORMATION
  Report Type: Report from Study
  Country: None (occurrence: US)
  Receive Date: 20200604
  Receipt Date: 20200605
  Transmission Date: 20200714
  Serious: No
  Sender: FDA-Public Use
  Company Number: US-US WORLDMEDS, LLC-USW201906-001224

PATIENT
  Age: 87 Year
  Sex: Male
  Weight: 68.03 kg

DRUGS (5)
  1. CARBIDOPA-LEVODOPA [Concomitant]
     Active Substance: CARBIDOPA\LEVODOPA
  2. APOKYN [Suspect]
     Active Substance: APOMORPHINE HYDROCHLORIDE
     Indication: PARKINSON^S DISEASE
     Route: 058
     Dates: start: 20190625, end: 20190625
  3. NORTHERA [Concomitant]
     Active Substance: DROXIDOPA
     Indication: ORTHOSTATIC HYPOTENSION
  4. TRAZODONE [Concomitant]
     Active Substance: TRAZODONE HYDROCHLORIDE
  5. LIPITOR [Concomitant]
     Active Substance: ATORVASTATIN CALCIUM

REACTIONS (2)
  - Dizziness [Recovered/Resolved]
  - Blood pressure decreased [Recovered/Resolved]

NARRATIVE: CASE EVENT DATE: 20190625
